FAERS Safety Report 6096319-1 (Version None)
Quarter: 2009Q1

REPORT INFORMATION
  Report Type: 
  Country: None (occurrence: None)
  Receive Date: 20090227
  Receipt Date: 20081112
  Transmission Date: 20090719
  Serious: No
  Sender: FDA-Public Use
  Company Number: A0755986A

PATIENT
  Sex: Female

DRUGS (7)
  1. LAMICTAL [Suspect]
     Indication: DEPRESSION
     Dosage: 25MG PER DAY
     Route: 048
     Dates: start: 20080924, end: 20081024
  2. LEXAPRO [Concomitant]
  3. NEURONTIN [Concomitant]
  4. HYDROCHLOROTHIAZIDE [Concomitant]
  5. COZAAR [Concomitant]
  6. ADVIL [Concomitant]
  7. ZYRTEC [Concomitant]

REACTIONS (8)
  - ABDOMINAL DISCOMFORT [None]
  - GLOSSODYNIA [None]
  - PRURITUS [None]
  - PRURITUS GENERALISED [None]
  - THERAPEUTIC RESPONSE UNEXPECTED [None]
  - VAGINAL LESION [None]
  - VAGINAL MUCOSAL BLISTERING [None]
  - VULVOVAGINAL BURNING SENSATION [None]
